FAERS Safety Report 8067394 (Version 3)
Quarter: 2014Q1

REPORT INFORMATION
  Report Type: Spontaneous
  Country: US (occurrence: US)
  Receive Date: 20110803
  Receipt Date: 20140207
  Transmission Date: 20141002
  Serious: Yes (Hospitalization)
  Sender: FDA-Public Use
  Company Number: US-GLAXOSMITHKLINE-A0782980A

PATIENT
  Age: 61 Year
  Sex: Male
  Weight: 113.6 kg

DRUGS (12)
  1. AVANDIA [Suspect]
     Indication: DIABETES MELLITUS
     Dosage: 8MG PER DAY
     Route: 048
     Dates: start: 20020925, end: 20070329
  2. INSULIN [Concomitant]
  3. BYETTA [Concomitant]
  4. ATENOLOL [Concomitant]
  5. PRAVACHOL [Concomitant]
  6. ARISTOCORT [Concomitant]
  7. NORVASC [Concomitant]
  8. AVAPRO [Concomitant]
  9. AVALIDE [Concomitant]
  10. TRICOR [Concomitant]
  11. ZESTRIL [Concomitant]
  12. VYTORIN [Concomitant]

REACTIONS (5)
  - Myocardial infarction [Not Recovered/Not Resolved]
  - Cardiac failure congestive [Unknown]
  - Ischaemic cardiomyopathy [Unknown]
  - Myocardial ischaemia [Unknown]
  - Injury [Unknown]
